FAERS Safety Report 8263875-4 (Version None)
Quarter: 2012Q2

REPORT INFORMATION
  Report Type: 
  Country: None (occurrence: None)
  Receive Date: 20120405
  Receipt Date: 20120402
  Transmission Date: 20120825
  Serious: Yes (Death, Hospitalization, Other)
  Sender: FDA-Public Use
  Company Number: US-ELI_LILLY_AND_COMPANY-US201112006921

PATIENT
  Sex: Female

DRUGS (6)
  1. NOVOLOG [Concomitant]
     Indication: DIABETES MELLITUS
     Dosage: UNK, UNKNOWN
  2. BYETTA [Suspect]
     Dosage: UNK
     Dates: start: 20060901, end: 20081201
  3. EXFORGE [Concomitant]
     Indication: HYPERTENSION
     Dosage: UNK, UNKNOWN
  4. TUMS ANTACID [Concomitant]
     Indication: ABDOMINAL DISCOMFORT
     Dosage: UNK, UNKNOWN
  5. DIOVAN [Concomitant]
     Indication: HYPERTENSION
     Dosage: UNK, UNKNOWN
  6. CIPROFLOXACIN [Concomitant]
     Indication: INFECTION
     Dosage: UNK, UNKNOWN

REACTIONS (4)
  - METASTASES TO LIVER [None]
  - PANCREATIC CARCINOMA [None]
  - PULMONARY EMBOLISM [None]
  - METASTASES TO LUNG [None]
